FAERS Safety Report 15128560 (Version 2)
Quarter: 2018Q4

REPORT INFORMATION
  Report Type: Spontaneous
  Country: AU (occurrence: AU)
  Receive Date: 20180711
  Receipt Date: 20181211
  Transmission Date: 20190204
  Serious: Yes (Hospitalization, Other)
  Sender: FDA-Public Use
  Company Number: AU-SUN PHARMACEUTICAL INDUSTRIES LTD-2018R1-177767

PATIENT
  Age: 31 Year
  Sex: Female

DRUGS (5)
  1. CICLOSPORIN [Suspect]
     Active Substance: CYCLOSPORINE
     Indication: SALVAGE THERAPY
     Route: 065
  2. AZATHIOPRINE. [Concomitant]
     Active Substance: AZATHIOPRINE
     Indication: COLITIS ULCERATIVE
     Dosage: 150 MILLIGRAM, DAILY, ADMINISTERED AT WEEKS 0,2 AND 6
     Route: 065
  3. AMINOSALICYLATE [Concomitant]
     Active Substance: AMINOSALICYLATE SODIUM
     Indication: COLITIS ULCERATIVE
     Dosage: 4 GRAM, DAILY, ADMINISTERED AT WEEKS 0,2 AND 6
     Route: 065
  4. HYDROCORTISONE. [Suspect]
     Active Substance: HYDROCORTISONE
     Indication: SALVAGE THERAPY
     Dosage: 100 MILLIGRAM, QID
     Route: 042
  5. INFLIXIMAB [Suspect]
     Active Substance: INFLIXIMAB
     Indication: COLITIS ULCERATIVE
     Dosage: ADMINISTERED AT WEEKS 0,2 AND 6
     Route: 065

REACTIONS (6)
  - Drug ineffective [Unknown]
  - Premature delivery [Unknown]
  - HELLP syndrome [Recovered/Resolved]
  - Weight decreased [Unknown]
  - Exposure during pregnancy [Unknown]
  - Pneumonia [Recovering/Resolving]
